FAERS Safety Report 10037245 (Version 1)
Quarter: 2014Q1

REPORT INFORMATION
  Report Type: Spontaneous
  Country: US (occurrence: None)
  Receive Date: 20140325
  Receipt Date: 20140325
  Transmission Date: 20141002
  Serious: No
  Sender: FDA-Public Use
  Company Number: None

PATIENT
  Age: 22 Month
  Sex: Male
  Weight: 12.7 kg

DRUGS (1)
  1. TAMIFLU [Suspect]
     Indication: INFLUENZA
     Dosage: 1 TSP
     Route: 048
     Dates: start: 20140322, end: 20140324

REACTIONS (3)
  - Oral mucosal blistering [None]
  - Swelling face [None]
  - Pain [None]
